FAERS Safety Report 6994080-7 (Version None)
Quarter: 2010Q3

REPORT INFORMATION
  Report Type: 
  Country: None (occurrence: None)
  Receive Date: 20100917
  Receipt Date: 20070703
  Transmission Date: 20110219
  Serious: Yes (Other)
  Sender: FDA-Public Use
  Company Number: US-ASTRAZENECA-2006UW27788

PATIENT
  Age: 18645 Day
  Sex: Female
  Weight: 92.5 kg

DRUGS (10)
  1. SEROQUEL [Suspect]
     Indication: DEPRESSION
     Route: 048
     Dates: start: 20020101
  2. SEROQUEL [Suspect]
     Indication: SUICIDAL BEHAVIOUR
     Route: 048
     Dates: start: 20020101
  3. SEROQUEL [Suspect]
     Indication: SLEEP DISORDER
     Route: 048
     Dates: start: 20020101
  4. TOPAMAX [Concomitant]
     Indication: WEIGHT CONTROL
     Dates: start: 20010101
  5. SINGULAIR [Concomitant]
     Dates: start: 20030101
  6. DETROL LA [Concomitant]
     Dates: start: 20020101
  7. NEXIUM [Concomitant]
     Indication: GASTRIC DISORDER
     Dosage: 40-80 MG
     Dates: start: 20010101
  8. ELAVIL [Concomitant]
     Dates: start: 20000101
  9. BEXTRA [Concomitant]
     Dosage: 20-40 MG
     Dates: start: 20030101
  10. REGLAN [Concomitant]
     Dosage: 20-40 MG
     Dates: start: 20010101

REACTIONS (3)
  - DIABETES MELLITUS [None]
  - DIABETES MELLITUS INADEQUATE CONTROL [None]
  - PANCREATITIS [None]
